FAERS Safety Report 4394771-0 (Version None)
Quarter: 2004Q3

REPORT INFORMATION
  Report Type: 
  Country: None (occurrence: None)
  Receive Date: 20040707
  Receipt Date: 20040623
  Transmission Date: 20050211
  Serious: Yes (Hospitalization)
  Sender: FDA-Public Use
  Company Number: 207358

PATIENT
  Sex: Male

DRUGS (3)
  1. MABTHERA (RITUXIMAB) CONC FOR SOLUTION FOR INFUSION [Suspect]
     Indication: LYMPHOMA
     Dosage: INTRAVENOUS
     Route: 042
  2. LANSOPRAZOLE [Concomitant]
  3. MAGIC MOUTH WASH (MOUTHWASH NOS) [Concomitant]

REACTIONS (2)
  - ABDOMINAL PAIN [None]
  - LARGE INTESTINAL OBSTRUCTION [None]
